FAERS Safety Report 10216150 (Version 1)
Quarter: 2014Q2

REPORT INFORMATION
  Report Type: Spontaneous
  Country: US (occurrence: US)
  Receive Date: 20140604
  Receipt Date: 20140604
  Transmission Date: 20141212
  Serious: Yes (Disabling)
  Sender: FDA-Public Use
  Company Number: US-JNJFOC-20140517573

PATIENT
  Age: 64 Year
  Sex: Female
  Weight: 83.46 kg

DRUGS (4)
  1. XARELTO [Suspect]
     Indication: DEEP VEIN THROMBOSIS
     Route: 048
     Dates: start: 20140222, end: 20140307
  2. XARELTO [Suspect]
     Indication: DEEP VEIN THROMBOSIS
     Route: 048
     Dates: start: 20140207, end: 20140221
  3. BENICAR [Concomitant]
     Route: 065
  4. ALBUTEROL [Concomitant]
     Indication: ASTHMA
     Dosage: FEW PUFFS PER YEAR
     Route: 065

REACTIONS (1)
  - Dyspnoea [Recovered/Resolved]
